FAERS Safety Report 24033174 (Version 1)
Quarter: 2024Q3

REPORT INFORMATION
  Report Type: Spontaneous
  Country: SG (occurrence: SG)
  Receive Date: 20240701
  Receipt Date: 20240701
  Transmission Date: 20241017
  Serious: Yes (Other)
  Sender: ROCHE
  Company Number: SG-CHEPLA-2024007777

PATIENT
  Age: 54 Year
  Sex: Male

DRUGS (2)
  1. GANCICLOVIR [Suspect]
     Active Substance: GANCICLOVIR
     Indication: Cytomegalovirus chorioretinitis
     Dosage: SEVEN WEEKLY INTRAVITREAL INJECTIONS OF GANCICLOVIR (2 MG/0.4 ML).
     Route: 031
  2. VALGANCICLOVIR [Suspect]
     Active Substance: VALGANCICLOVIR
     Indication: Cytomegalovirus chorioretinitis
     Dosage: 900 MG TWICE DAILY
     Route: 048

REACTIONS (3)
  - Immune recovery uveitis [Unknown]
  - Retinal degeneration [Unknown]
  - Off label use [Unknown]
